FAERS Safety Report 8155550-1 (Version None)
Quarter: 2012Q1

REPORT INFORMATION
  Report Type: 
  Country: None (occurrence: None)
  Receive Date: 20120215
  Receipt Date: 20120130
  Transmission Date: 20120608
  Serious: Yes (Death, Hospitalization)
  Sender: FDA-Public Use
  Company Number: GER/GER/12/0022945

PATIENT
  Age: 75 Year
  Sex: Male

DRUGS (10)
  1. DIGITALIS (DIGITALIS PURPUREA) [Concomitant]
  2. LENOGRASTIM (LENOGRASTIM) [Concomitant]
  3. DANAZOL [Concomitant]
  4. FOLIC ACID [Concomitant]
  5. FUROSEMIDE [Concomitant]
  6. CLOPIDOGREL [Suspect]
     Indication: PRODUCT USED FOR UNKNOWN INDICATION
  7. PANTOPRAZOLE [Concomitant]
  8. ERYTHROPOIETIN (ERYTHROPOIETIN) [Concomitant]
  9. METHYLPREDNISOLONE [Suspect]
     Indication: PRODUCT USED FOR UNKNOWN INDICATION
     Dosage: 16 MG, 1 IN 1 D, UNKNOWN
  10. METFORMIN HCL [Concomitant]

REACTIONS (5)
  - ACUTE MYOCARDIAL INFARCTION [None]
  - SKIN INFECTION [None]
  - BONE MARROW FAILURE [None]
  - SUBCUTANEOUS NODULE [None]
  - PNEUMOCYSTIS JIROVECI PNEUMONIA [None]
